APPROVED DRUG PRODUCT: XENAZINE
Active Ingredient: TETRABENAZINE
Strength: 25MG
Dosage Form/Route: TABLET;ORAL
Application: N021894 | Product #002 | TE Code: AB
Applicant: BAUSCH HEALTH US LLC
Approved: Aug 15, 2008 | RLD: Yes | RS: Yes | Type: RX